FAERS Safety Report 6848028-6 (Version None)
Quarter: 2010Q3

REPORT INFORMATION
  Report Type: 
  Country: None (occurrence: None)
  Receive Date: 20100716
  Receipt Date: 20100707
  Transmission Date: 20110219
  Serious: Yes (Hospitalization, Other)
  Sender: FDA-Public Use
  Company Number: US-SANOFI-AVENTIS-2010SA030753

PATIENT
  Age: 57 Year
  Sex: Male
  Weight: 113 kg

DRUGS (2)
  1. LANTUS [Suspect]
     Indication: INSULIN-REQUIRING TYPE 2 DIABETES MELLITUS
     Dosage: DOSE:40 UNIT(S)
     Route: 058
     Dates: start: 20040101
  2. SOLOSTAR [Suspect]
     Indication: INSULIN-REQUIRING TYPE 2 DIABETES MELLITUS

REACTIONS (10)
  - CEREBROVASCULAR ACCIDENT [None]
  - EFFUSION [None]
  - GAIT SPASTIC [None]
  - MOBILITY DECREASED [None]
  - MUSCULAR WEAKNESS [None]
  - PNEUMONIA [None]
  - PULMONARY EMBOLISM [None]
  - RENAL FAILURE [None]
  - SPLEEN DISORDER [None]
  - THORACOTOMY [None]
